FAERS Safety Report 5088446-2 (Version None)
Quarter: 2006Q3

REPORT INFORMATION
  Report Type: 
  Country: None (occurrence: None)
  Receive Date: 20060822
  Receipt Date: 20060809
  Transmission Date: 20061208
  Serious: Yes (Hospitalization)
  Sender: FDA-Public Use
  Company Number: 2006098001

PATIENT
  Age: 58 Year
  Sex: Male
  Weight: 83 kg

DRUGS (8)
  1. MEDROL [Suspect]
     Indication: DRUG USE FOR UNKNOWN INDICATION
     Dosage: 60 MG (60 MG, 1 IN 1 D) ORAL
     Route: 048
     Dates: end: 20060101
  2. CEFTRIAXONE [Concomitant]
  3. ACYCLOVIR [Concomitant]
  4. VANCOMYCIN [Concomitant]
  5. NEFOPAM [Concomitant]
  6. ENOXAPARIN SODIUM [Concomitant]
  7. ACETAMINOPHEN [Concomitant]
  8. PHENYTOIN (PHENYTON SODIUM) [Concomitant]

REACTIONS (6)
  - ALANINE AMINOTRANSFERASE INCREASED [None]
  - ASPARTATE AMINOTRANSFERASE INCREASED [None]
  - BILIARY CYST [None]
  - BLOOD ALKALINE PHOSPHATASE INCREASED [None]
  - GAMMA-GLUTAMYLTRANSFERASE INCREASED [None]
  - HEPATIC STEATOSIS [None]
